FAERS Safety Report 16955400 (Version 1)
Quarter: 2019Q4

REPORT INFORMATION
  Report Type: Spontaneous
  Country: US (occurrence: US)
  Receive Date: 20190904
  Receipt Date: 20190904
  Transmission Date: 20200122
  Serious: Yes (Hospitalization)
  Sender: FDA-Public Use
  Company Number: None

PATIENT
  Age: 59 Year
  Sex: Female

DRUGS (11)
  1. OMEPRAZOLE. [Concomitant]
     Active Substance: OMEPRAZOLE
  2. POLYETH [Concomitant]
  3. IRON [Concomitant]
     Active Substance: IRON
  4. STELARA [Suspect]
     Active Substance: USTEKINUMAB
     Indication: CROHN^S DISEASE
     Dosage: ?          OTHER FREQUENCY:Q8WKS;?
     Route: 058
     Dates: start: 20190502
  5. ONDANSETRON [Concomitant]
     Active Substance: ONDANSETRON
  6. AUGMENTIN [Concomitant]
     Active Substance: AMOXICILLIN\CLAVULANATE POTASSIUM
  7. METRONIDAZOL [Concomitant]
     Active Substance: METRONIDAZOLE
  8. MULTIVITAMIN [Concomitant]
     Active Substance: VITAMINS
  9. OXYCODONE [Concomitant]
     Active Substance: OXYCODONE
  10. HYDROXYZ HCL [Concomitant]
     Active Substance: HYDROXYZINE HYDROCHLORIDE
  11. AMOXICILLIN. [Concomitant]
     Active Substance: AMOXICILLIN

REACTIONS (2)
  - Sigmoidectomy [None]
  - Colostomy [None]

NARRATIVE: CASE EVENT DATE: 201908
